FAERS Safety Report 6647817-0 (Version None)
Quarter: 2010Q1

REPORT INFORMATION
  Report Type: 
  Country: None (occurrence: None)
  Receive Date: 20100318
  Receipt Date: 20100310
  Transmission Date: 20100710
  Serious: Yes (Other)
  Sender: FDA-Public Use
  Company Number: 2010SP015035

PATIENT
  Age: 34 Year
  Sex: Male

DRUGS (6)
  1. MIRTAZAPINE [Suspect]
     Indication: DEPRESSION
     Dosage: 15 MG;QD; PO
     Route: 048
     Dates: start: 20091109, end: 20100205
  2. LITHIUM CARBONATE [Concomitant]
  3. NORTRIPTYLINE HYDROCHLORIDE [Concomitant]
  4. TRAZODONE HYDROCHLORIDE [Concomitant]
  5. BROMAZEPAM [Concomitant]
  6. RISPERIDONE [Concomitant]

REACTIONS (4)
  - FEELING ABNORMAL [None]
  - FEELING HOT [None]
  - HYPERTENSION [None]
  - TACHYCARDIA [None]
